FAERS Safety Report 7907164-3 (Version None)
Quarter: 2011Q4

REPORT INFORMATION
  Report Type: 
  Country: None (occurrence: None)
  Receive Date: 20111110
  Receipt Date: 20111101
  Transmission Date: 20120403
  Serious: Yes (Hospitalization, Other)
  Sender: FDA-Public Use
  Company Number: AU-B.I. PHARMACEUTICALS,INC./RIDGEFIELD-2011-AU-01913AU

PATIENT
  Sex: Male
  Weight: 80 kg

DRUGS (5)
  1. AMIODARONE HCL [Concomitant]
  2. CARVEDILOL [Concomitant]
  3. PRADAXA [Suspect]
     Indication: ATRIAL FIBRILLATION
     Dosage: 220 MG
  4. ATACAND [Concomitant]
  5. FUROSEMIDE [Concomitant]

REACTIONS (6)
  - RASH [None]
  - NAUSEA [None]
  - DECREASED APPETITE [None]
  - ABDOMINAL DISTENSION [None]
  - PULMONARY EMBOLISM [None]
  - LIVER INJURY [None]
